FAERS Safety Report 15974120 (Version 2)
Quarter: 2019Q2

REPORT INFORMATION
  Report Type: Spontaneous
  Country: US (occurrence: US)
  Receive Date: 20190218
  Receipt Date: 20190412
  Transmission Date: 20190711
  Serious: No
  Sender: FDA-Public Use
  Company Number: US-JNJFOC-20190204148

PATIENT
  Age: 90 Year
  Sex: Female
  Weight: 48 kg

DRUGS (1)
  1. IMBRUVICA [Suspect]
     Active Substance: IBRUTINIB
     Indication: CHRONIC LYMPHOCYTIC LEUKAEMIA
     Route: 048
     Dates: start: 20190109, end: 20190120

REACTIONS (13)
  - Vulvovaginal pain [Unknown]
  - Vision blurred [Recovering/Resolving]
  - Headache [Recovering/Resolving]
  - Asthenia [Unknown]
  - Dizziness [Recovering/Resolving]
  - Hypertension [Recovering/Resolving]
  - Skin burning sensation [Unknown]
  - Off label use [Unknown]
  - Incorrect dose administered [Unknown]
  - Vulvitis [Recovering/Resolving]
  - Paraesthesia [Unknown]
  - General physical health deterioration [Unknown]
  - Pain of skin [Recovering/Resolving]

NARRATIVE: CASE EVENT DATE: 201901
